FAERS Safety Report 10332459 (Version 1)
Quarter: 2014Q3

REPORT INFORMATION
  Report Type: Spontaneous
  Country: IT (occurrence: None)
  Receive Date: 20140718
  Receipt Date: 20140718
  Transmission Date: 20150326
  Serious: Yes (Hospitalization, Other)
  Sender: FDA-Public Use
  Company Number: ADR-2014-01248

PATIENT
  Age: 17 Year
  Sex: Male

DRUGS (10)
  1. BACLOFEN. [Suspect]
     Active Substance: BACLOFEN
     Indication: DYSTONIA
     Dosage: 5MG, 10MG 3 X DAILY
  2. DIAZEPAM. [Suspect]
     Active Substance: DIAZEPAM
     Indication: DYSTONIA
  3. LAMOTRIGINE. [Suspect]
     Active Substance: LAMOTRIGINE
     Indication: DYSTONIA
  4. PROPOFOL. [Suspect]
     Active Substance: PROPOFOL
  5. PHENOBARBITAL. [Suspect]
     Active Substance: PHENOBARBITAL
     Indication: DYSTONIA
  6. LORAZEPAM (NGX) (LORAZEPAM) UNKNOWN [Suspect]
     Active Substance: LORAZEPAM
  7. RUFINAMIDE [Suspect]
     Active Substance: RUFINAMIDE
  8. MIDAZOLAM [Suspect]
     Active Substance: MIDAZOLAM\MIDAZOLAM HYDROCHLORIDE
  9. VALPROIC ACID. [Suspect]
     Active Substance: VALPROIC ACID
     Indication: DYSTONIA
  10. TETRABENAZINE [Suspect]
     Active Substance: TETRABENAZINE
     Indication: DYSTONIA

REACTIONS (11)
  - Rhabdomyolysis [None]
  - Malnutrition [None]
  - Hyperpyrexia [None]
  - Respiratory distress [None]
  - No therapeutic response [None]
  - Opisthotonus [None]
  - Psychomotor hyperactivity [None]
  - Dystonia [None]
  - Drug ineffective [None]
  - Pain [None]
  - Renal failure [None]
